FAERS Safety Report 16711432 (Version 1)
Quarter: 2019Q3

REPORT INFORMATION
  Report Type: Spontaneous
  Country: US (occurrence: US)
  Receive Date: 20190816
  Receipt Date: 20190816
  Transmission Date: 20191004
  Serious: No
  Sender: FDA-Public Use
  Company Number: US-SA-2019SA219728

PATIENT
  Age: 58 Year
  Sex: Female

DRUGS (1)
  1. TOUJEO [Suspect]
     Active Substance: INSULIN GLARGINE
     Indication: TYPE 2 DIABETES MELLITUS
     Dosage: 31 U, HS
     Route: 065

REACTIONS (4)
  - Somnolence [Unknown]
  - Injection site pain [Unknown]
  - Pain [Unknown]
  - Injection site vesicles [Unknown]
